FAERS Safety Report 10129163 (Version 1)
Quarter: 2014Q2

REPORT INFORMATION
  Report Type: Spontaneous
  Country: US (occurrence: None)
  Receive Date: 20140425
  Receipt Date: 20140425
  Transmission Date: 20141212
  Serious: Yes (Other)
  Sender: FDA-Public Use
  Company Number: None

PATIENT
  Age: 66 Year
  Sex: Female
  Weight: 59 kg

DRUGS (1)
  1. ZOLEDRONIC ACID [Suspect]
     Route: 042
     Dates: start: 20140321

REACTIONS (4)
  - Neck pain [None]
  - Musculoskeletal pain [None]
  - Pain in extremity [None]
  - Pyrexia [None]
